FAERS Safety Report 17557632 (Version 1)
Quarter: 2020Q1

REPORT INFORMATION
  Report Type: Spontaneous
  Country: DE (occurrence: DE)
  Receive Date: 20200318
  Receipt Date: 20200318
  Transmission Date: 20200409
  Serious: Yes (Other)
  Sender: FDA-Public Use
  Company Number: DE-MYLANLABS-2020M1028805

PATIENT
  Sex: Female

DRUGS (1)
  1. VALSARTAN DURA [Suspect]
     Active Substance: VALSARTAN
     Indication: PRODUCT USED FOR UNKNOWN INDICATION
     Dosage: 160 MILLIGRAM, QD

REACTIONS (4)
  - Recalled product administered [Unknown]
  - Fear of disease [Unknown]
  - Mental impairment [Unknown]
  - Impaired quality of life [Unknown]
